FAERS Safety Report 13986826 (Version 3)
Quarter: 2018Q2

REPORT INFORMATION
  Report Type: Spontaneous
  Country: JP (occurrence: JP)
  Receive Date: 20170919
  Receipt Date: 20180525
  Transmission Date: 20180711
  Serious: Yes (Hospitalization, Other)
  Sender: FDA-Public Use
  Company Number: JP-PFIZER INC-2017401444

PATIENT
  Age: 68 Year
  Sex: Female
  Weight: 48.8 kg

DRUGS (5)
  1. LANSOPRAZOLE. [Concomitant]
     Active Substance: LANSOPRAZOLE
     Dosage: UNK
     Route: 048
  2. EXCEGRAN [Suspect]
     Active Substance: ZONISAMIDE
     Indication: CONVULSION PROPHYLAXIS
     Dosage: 100 MG, BID
     Route: 048
     Dates: start: 20170131, end: 20170221
  3. CARBOCISTEINE [Concomitant]
     Active Substance: CARBOCYSTEINE
     Dosage: UNK
     Route: 048
  4. EXCEGRAN [Suspect]
     Active Substance: ZONISAMIDE
     Indication: MENINGIOMA
  5. NORVASC [Suspect]
     Active Substance: AMLODIPINE BESYLATE
     Dosage: UNK
     Route: 048

REACTIONS (1)
  - Drug reaction with eosinophilia and systemic symptoms [Recovered/Resolved]

NARRATIVE: CASE EVENT DATE: 20170218
